FAERS Safety Report 15725061 (Version 1)
Quarter: 2018Q4

REPORT INFORMATION
  Report Type: Spontaneous
  Country: IE (occurrence: IE)
  Receive Date: 20181214
  Receipt Date: 20181214
  Transmission Date: 20190205
  Serious: Yes (Other)
  Sender: FDA-Public Use
  Company Number: IE-MYLANLABS-2018M1092392

PATIENT
  Sex: Male

DRUGS (1)
  1. XATGER 10 MG, PROLONGED-RELEASE TABLETS [Suspect]
     Active Substance: ALFUZOSIN HYDROCHLORIDE
     Indication: PRODUCT USED FOR UNKNOWN INDICATION
     Dosage: UNK

REACTIONS (3)
  - Product use complaint [Unknown]
  - Choking [Unknown]
  - Product physical issue [Unknown]
